FAERS Safety Report 13641663 (Version 3)
Quarter: 2017Q3

REPORT INFORMATION
  Report Type: Spontaneous
  Country: JP (occurrence: JP)
  Receive Date: 20170612
  Receipt Date: 20170724
  Transmission Date: 20171127
  Serious: Yes (Death, Life-Threatening, Hospitalization)
  Sender: FDA-Public Use
  Company Number: JP-AMGEN-JPNSP2017081751

PATIENT
  Age: 81 Year
  Sex: Female
  Weight: 41 kg

DRUGS (13)
  1. FOSRENOL [Concomitant]
     Active Substance: LANTHANUM CARBONATE
     Indication: CHRONIC KIDNEY DISEASE
     Dosage: 250 MG, QD
     Route: 048
  2. AMVALO [Concomitant]
     Indication: HYPERTENSION
     Dosage: 1 DF, QD
     Route: 048
  3. VALSARTAN. [Concomitant]
     Active Substance: VALSARTAN
     Indication: HYPERTENSION
     Dosage: 80 MG, QD
     Route: 048
  4. KREMEZIN [Concomitant]
     Active Substance: ACTIVATED CHARCOAL
     Indication: CHRONIC KIDNEY DISEASE
     Dosage: 2 G, TID
     Route: 048
  5. ELCITONIN [Suspect]
     Active Substance: ELCATONIN
     Indication: SPINAL COMPRESSION FRACTURE
  6. PRALIA [Suspect]
     Active Substance: DENOSUMAB
     Indication: OSTEOPOROSIS
     Dosage: 60 MG, QD
     Route: 050
     Dates: start: 20170502
  7. PRALIA [Suspect]
     Active Substance: DENOSUMAB
     Dosage: 60 MG, UNK
     Route: 050
  8. CARVEDILOL. [Concomitant]
     Active Substance: CARVEDILOL
     Indication: HYPERTENSION
     Dosage: 5 MG, QD
     Route: 048
  9. BETAHISTINE MESILATE [Concomitant]
     Active Substance: BETAHISTINE MESILATE
     Indication: DIZZINESS
     Dosage: 12 MG, TID
     Route: 048
  10. APONOL [Concomitant]
     Active Substance: IFENPRODIL TARTRATE
     Indication: PRODUCT USED FOR UNKNOWN INDICATION
     Dosage: 20 MG, TID
     Route: 048
  11. ELCITONIN [Suspect]
     Active Substance: ELCATONIN
     Indication: OSTEOPOROSIS
     Dosage: 20 UNK, QD
     Route: 050
     Dates: start: 20170508
  12. ADETPHOS [Concomitant]
     Active Substance: ADENOSINE TRIPHOSPHATE
     Indication: DIZZINESS
     Dosage: 1 G, TID
     Route: 048
  13. FEBURIC [Concomitant]
     Active Substance: FEBUXOSTAT
     Indication: CHRONIC KIDNEY DISEASE
     Dosage: 10 MG, QD
     Route: 048

REACTIONS (2)
  - Hypocalcaemia [Recovering/Resolving]
  - Cerebral haemorrhage [Fatal]

NARRATIVE: CASE EVENT DATE: 20170517
